FAERS Safety Report 26116667 (Version 1)
Quarter: 2025Q4

REPORT INFORMATION
  Report Type: Spontaneous
  Country: ET (occurrence: None)
  Receive Date: 20251203
  Receipt Date: 20251203
  Transmission Date: 20260117
  Serious: Yes (Other)
  Sender: ORGANON
  Company Number: ET-ORGANON-O2511ETH001356

PATIENT
  Sex: Female

DRUGS (1)
  1. ETONOGESTREL [Suspect]
     Active Substance: ETONOGESTREL
     Indication: Contraception
     Dosage: 1 IMPLANT IN LEFT ARM
     Route: 065

REACTIONS (6)
  - Device dislocation [Recovered/Resolved]
  - Complication of device removal [Recovered/Resolved]
  - Complication associated with device [Recovered/Resolved]
  - Device issue [Recovered/Resolved]
  - Complication of device removal [Recovered/Resolved]
  - Incorrect product administration duration [Unknown]
